FAERS Safety Report 5831279-7 (Version None)
Quarter: 2008Q3

REPORT INFORMATION
  Report Type: 
  Country: None (occurrence: None)
  Receive Date: 20080801
  Receipt Date: 20080729
  Transmission Date: 20090109
  Serious: Yes (Life-Threatening)
  Sender: FDA-Public Use
  Company Number: ES-BOEHRINGER INGELHEIM GMBH, GERMANY-2008-ES-00614ES

PATIENT
  Age: 76 Year
  Sex: Female

DRUGS (6)
  1. MICARDIS [Suspect]
     Indication: HYPERTENSION
     Route: 048
     Dates: end: 20080311
  2. LISINOPRIL [Suspect]
     Indication: HYPERTENSION
     Route: 048
     Dates: start: 20070501, end: 20080311
  3. AINES [Suspect]
     Route: 030
     Dates: start: 20080301
  4. AMERIDE [Suspect]
     Route: 048
     Dates: start: 20070501, end: 20080311
  5. ADOLONTA RETARD [Concomitant]
     Indication: PAIN
     Route: 048
     Dates: start: 20071201
  6. OXYNORM [Concomitant]
     Indication: PAIN
     Route: 048
     Dates: start: 20080201

REACTIONS (2)
  - HYPERKALAEMIA [None]
  - RENAL FAILURE [None]
